FAERS Safety Report 7965647-4 (Version None)
Quarter: 2011Q4

REPORT INFORMATION
  Report Type: 
  Country: None (occurrence: None)
  Receive Date: 20111208
  Receipt Date: 20111130
  Transmission Date: 20120403
  Serious: Yes (Hospitalization)
  Sender: FDA-Public Use
  Company Number: US-JNJFOC-20111200770

PATIENT
  Sex: Male

DRUGS (3)
  1. HALDOL [Suspect]
     Route: 030
     Dates: start: 20110901
  2. HALDOL [Suspect]
     Route: 030
  3. HALDOL [Suspect]
     Indication: PRODUCT USED FOR UNKNOWN INDICATION
     Route: 065
     Dates: start: 20110601, end: 20110901

REACTIONS (3)
  - PRODUCT QUALITY ISSUE [None]
  - PSYCHOTIC DISORDER [None]
  - HOSPITALISATION [None]
